FAERS Safety Report 21039393 (Version 1)
Quarter: 2022Q3

REPORT INFORMATION
  Report Type: Spontaneous
  Country: CN (occurrence: None)
  Receive Date: 20220704
  Receipt Date: 20220704
  Transmission Date: 20221026
  Serious: Yes (Other)
  Sender: FDA-Public Use
  Company Number: 2022A240094

PATIENT
  Age: 67 Year
  Sex: Male
  Weight: 83 kg

DRUGS (2)
  1. GEFITINIB [Suspect]
     Active Substance: GEFITINIB
     Indication: Neoplasm
     Route: 048
     Dates: start: 20220120
  2. GEFITINIB [Suspect]
     Active Substance: GEFITINIB
     Indication: Toxicity to various agents
     Route: 048
     Dates: start: 20220120

REACTIONS (3)
  - Rash pruritic [Recovering/Resolving]
  - Haemorrhage subcutaneous [Unknown]
  - Discomfort [Unknown]

NARRATIVE: CASE EVENT DATE: 20220615
